FAERS Safety Report 7874282-8 (Version None)
Quarter: 2011Q4

REPORT INFORMATION
  Report Type: 
  Country: None (occurrence: None)
  Receive Date: 20111030
  Receipt Date: 20110517
  Transmission Date: 20120403
  Serious: No
  Sender: FDA-Public Use
  Company Number: US-AMGEN-USASP2011025584

PATIENT
  Sex: Female

DRUGS (1)
  1. ENBREL [Suspect]
     Indication: ECZEMA
     Dosage: 50 MG, QWK
     Route: 058
     Dates: start: 20100901, end: 20101201

REACTIONS (1)
  - ECZEMA [None]
